FAERS Safety Report 18970174 (Version 1)
Quarter: 2021Q1

REPORT INFORMATION
  Report Type: Spontaneous
  Country: CO (occurrence: CO)
  Receive Date: 20210304
  Receipt Date: 20210304
  Transmission Date: 20210420
  Serious: Yes (Other)
  Sender: FDA-Public Use
  Company Number: CO-PFIZER INC-2021213940

PATIENT
  Age: 57 Year
  Sex: Female

DRUGS (1)
  1. XELJANZ [Suspect]
     Active Substance: TOFACITINIB CITRATE
     Indication: RHEUMATOID ARTHRITIS
     Dosage: 5 MG
     Route: 048
     Dates: start: 2019

REACTIONS (9)
  - Fall [Unknown]
  - Pain [Unknown]
  - Limb injury [Unknown]
  - Laboratory test abnormal [Unknown]
  - Joint injury [Unknown]
  - Dizziness [Not Recovered/Not Resolved]
  - Musculoskeletal stiffness [Unknown]
  - Chest injury [Unknown]
  - Face injury [Not Recovered/Not Resolved]

NARRATIVE: CASE EVENT DATE: 202011
